FAERS Safety Report 20103197 (Version 1)
Quarter: 2021Q4

REPORT INFORMATION
  Report Type: Report from Study
  Country: US (occurrence: US)
  Receive Date: 20211123
  Receipt Date: 20211123
  Transmission Date: 20220303
  Serious: Yes (Other)
  Sender: FDA-Public Use
  Company Number: US-BAXTER-2014BAX018763

PATIENT
  Sex: Male
  Weight: 86 kg

DRUGS (2)
  1. HUMAN IMMUNOGLOBULIN G [Suspect]
     Active Substance: HUMAN IMMUNOGLOBULIN G
     Indication: Bruton^s agammaglobulinaemia
     Dosage: INFUSED OVER 2.5 HOUR
     Route: 042
     Dates: start: 201312
  2. COVID-19 VACCINE NOS [Suspect]
     Active Substance: COVID-19 VACCINE NOS
     Indication: COVID-19 immunisation
     Route: 065

REACTIONS (4)
  - Sinusitis [Recovered/Resolved]
  - Hypertension [Not Recovered/Not Resolved]
  - Pyrexia [Unknown]
  - COVID-19 immunisation [Unknown]

NARRATIVE: CASE EVENT DATE: 20130101
